FAERS Safety Report 9020610 (Version 1)
Quarter: 2013Q1

REPORT INFORMATION
  Report Type: Spontaneous
  Country: US (occurrence: US)
  Receive Date: 20130119
  Receipt Date: 20130119
  Transmission Date: 20140127
  Serious: No
  Sender: FDA-Public Use
  Company Number: US-ALLERGAN-1206902US

PATIENT
  Age: 43 Year
  Sex: Female

DRUGS (5)
  1. BOTOX COSMETIC [Suspect]
     Indication: SKIN WRINKLING
     Dosage: 36 UNITS, SINGLE
     Route: 030
     Dates: start: 20120307, end: 20120307
  2. BOTOX COSMETIC [Suspect]
     Indication: SKIN WRINKLING
  3. WELLBUTRIN [Concomitant]
     Dosage: 150 MG, QD
     Route: 048
  4. NEXIUM [Concomitant]
     Dosage: 40 MG, QD
     Route: 048
  5. EXCEDRIN [Concomitant]
     Indication: MIGRAINE
     Dosage: UNK
     Route: 048

REACTIONS (3)
  - Paraesthesia [Not Recovered/Not Resolved]
  - Paraesthesia [Not Recovered/Not Resolved]
  - Therapeutic response decreased [Unknown]
